FAERS Safety Report 7231186-1 (Version None)
Quarter: 2011Q1

REPORT INFORMATION
  Report Type: 
  Country: None (occurrence: None)
  Receive Date: 20110118
  Receipt Date: 20110112
  Transmission Date: 20110831
  Serious: Yes (Hospitalization)
  Sender: FDA-Public Use
  Company Number: A0905431A

PATIENT
  Age: 68 Year
  Sex: Female

DRUGS (8)
  1. AVANDIA [Suspect]
     Dosage: 8MG PER DAY
     Route: 048
  2. GLUCOTROL [Concomitant]
  3. ASPIRIN [Concomitant]
  4. MULTI-VITAMIN [Concomitant]
  5. ASCORBIC ACID [Concomitant]
  6. XANAX [Concomitant]
  7. CELEXA [Concomitant]
  8. TYLENOL [Concomitant]

REACTIONS (3)
  - RENAL IMPAIRMENT [None]
  - HAEMORRHAGE [None]
  - RENAL FAILURE [None]
